FAERS Safety Report 14531627 (Version 1)
Quarter: 2018Q1

REPORT INFORMATION
  Report Type: Spontaneous
  Country: RS (occurrence: RS)
  Receive Date: 20180214
  Receipt Date: 20180214
  Transmission Date: 20180509
  Serious: Yes (Death, Life-Threatening, Hospitalization)
  Sender: FDA-Public Use
  Company Number: RS-SA-2017SA129083

PATIENT
  Age: 14 Year
  Sex: Female

DRUGS (10)
  1. METHYLPREDNISOLONE. [Suspect]
     Active Substance: METHYLPREDNISOLONE
     Indication: TOXIC EPIDERMAL NECROLYSIS
     Route: 065
  2. AMPICILLIN [Concomitant]
     Active Substance: AMPICILLIN
     Indication: ANTIBIOTIC THERAPY
     Route: 065
  3. MEROPENEM. [Concomitant]
     Active Substance: MEROPENEM
  4. MORPHINE [Concomitant]
     Active Substance: MORPHINE
     Route: 065
  5. VANCOMYCIN [Concomitant]
     Active Substance: VANCOMYCIN
  6. AMIKACIN [Concomitant]
     Active Substance: AMIKACIN
     Indication: ANTIBIOTIC THERAPY
     Route: 065
  7. CEFTRIAXONE. [Concomitant]
     Active Substance: CEFTRIAXONE
  8. FLUCONAZOLE. [Concomitant]
     Active Substance: FLUCONAZOLE
  9. RANITIDINE. [Suspect]
     Active Substance: RANITIDINE
     Route: 065
  10. METRONIDAZOLE. [Concomitant]
     Active Substance: METRONIDAZOLE
     Indication: ANTIBIOTIC THERAPY
     Route: 065

REACTIONS (28)
  - Septic shock [Fatal]
  - Bacteraemia [Fatal]
  - Anxiety [Unknown]
  - Metabolic acidosis [Unknown]
  - Drug ineffective [Unknown]
  - Skin erosion [Unknown]
  - Disorientation [Unknown]
  - Pleural effusion [Unknown]
  - Hypersensitivity [Recovered/Resolved]
  - Rash [Unknown]
  - Myalgia [Unknown]
  - Rash generalised [Unknown]
  - Cheilitis [Unknown]
  - Pneumonia [Not Recovered/Not Resolved]
  - Confusional state [Unknown]
  - Stomatitis [Unknown]
  - Toxic epidermal necrolysis [Not Recovered/Not Resolved]
  - General physical health deterioration [Unknown]
  - Pyrexia [Unknown]
  - Respiratory failure [Fatal]
  - Eyelid oedema [Unknown]
  - Somnolence [Unknown]
  - Multiple organ dysfunction syndrome [Fatal]
  - Malaise [Unknown]
  - Skin necrosis [Unknown]
  - Scab [Unknown]
  - Pseudomonas infection [Fatal]
  - Conjunctivitis [Unknown]
